FAERS Safety Report 8573850-8 (Version None)
Quarter: 2012Q3

REPORT INFORMATION
  Report Type: 
  Country: None (occurrence: None)
  Receive Date: 20120806
  Receipt Date: 20111031
  Transmission Date: 20120928
  Serious: No
  Sender: FDA-Public Use
  Company Number: US-GLAXOSMITHKLINE-A0951376A

PATIENT
  Sex: Male

DRUGS (6)
  1. FLUTICASONE PROPIONATE [Suspect]
     Indication: CHRONIC OBSTRUCTIVE PULMONARY DISEASE
     Dosage: 2PUFF TWICE PER DAY
     Route: 055
     Dates: start: 20110401, end: 20111026
  2. RESTORIL [Concomitant]
  3. BENADRYL [Concomitant]
  4. COREG [Concomitant]
  5. VITAMIN TAB [Concomitant]
  6. DIAZIDE [Concomitant]

REACTIONS (1)
  - RASH [None]
